FAERS Safety Report 5010427-5 (Version None)
Quarter: 2006Q2

REPORT INFORMATION
  Report Type: 
  Country: None (occurrence: None)
  Receive Date: 20060525
  Receipt Date: 20060516
  Transmission Date: 20061013
  Serious: Yes (Other)
  Sender: FDA-Public Use
  Company Number: US-JNJFOC-20060302601

PATIENT
  Sex: Male
  Weight: 77.11 kg

DRUGS (2)
  1. REMICADE [Suspect]
     Route: 042
  2. AZATHIOPRINE [Concomitant]

REACTIONS (1)
  - NOCARDIOSIS [None]
